FAERS Safety Report 21126309 (Version 1)
Quarter: 2022Q3

REPORT INFORMATION
  Report Type: Spontaneous
  Country: FR (occurrence: FR)
  Receive Date: 20220725
  Receipt Date: 20220725
  Transmission Date: 20221027
  Serious: Yes (Congenital Anomaly)
  Sender: FDA-Public Use
  Company Number: FR-NOVARTISPH-NVSC2022FR167331

PATIENT
  Sex: Male

DRUGS (1)
  1. GILENYA [Suspect]
     Active Substance: FINGOLIMOD HYDROCHLORIDE
     Indication: Foetal exposure during pregnancy
     Dosage: MATERNAL DOSE: UNKNOWN
     Route: 064

REACTIONS (6)
  - Gastrointestinal disorder congenital [Unknown]
  - Gastrooesophageal reflux disease [Unknown]
  - Vesicoureteric reflux [Unknown]
  - Familial hypocalciuric hypercalcaemia [Unknown]
  - Vomiting [Unknown]
  - Foetal exposure during pregnancy [Unknown]
